FAERS Safety Report 24038728 (Version 1)
Quarter: 2024Q3

REPORT INFORMATION
  Report Type: Spontaneous
  Country: US (occurrence: US)
  Receive Date: 20240702
  Receipt Date: 20240702
  Transmission Date: 20241016
  Serious: Yes (Hospitalization, Other)
  Sender: Haleon PLC
  Company Number: US-HALEON-2183938

PATIENT
  Age: 18 Year
  Sex: Male

DRUGS (1)
  1. IBUPROFEN [Suspect]
     Active Substance: IBUPROFEN
     Indication: Upper respiratory tract infection
     Dosage: 400-600 MG EVERY SIX TO EIGHT HOURS

REACTIONS (3)
  - Haematemesis [Recovered/Resolved]
  - Melaena [Recovered/Resolved]
  - Syncope [Recovered/Resolved]
